FAERS Safety Report 25438509 (Version 1)
Quarter: 2025Q2

REPORT INFORMATION
  Report Type: Spontaneous
  Country: US (occurrence: US)
  Receive Date: 20250616
  Receipt Date: 20250616
  Transmission Date: 20250717
  Serious: No
  Sender: BRISTOL-MYERS SQUIBB COMPANY
  Company Number: US-BRISTOL-MYERS SQUIBB COMPANY-2025-085053

PATIENT
  Age: 40 Year
  Sex: Female

DRUGS (2)
  1. AUGTYRO [Suspect]
     Active Substance: REPOTRECTINIB
     Indication: Product used for unknown indication
     Dosage: FOR 14 DAYS
     Route: 048
  2. AUGTYRO [Suspect]
     Active Substance: REPOTRECTINIB
     Dosage: FOR 14 DAYS
     Route: 048

REACTIONS (1)
  - Treatment noncompliance [Unknown]

NARRATIVE: CASE EVENT DATE: 20250609
